FAERS Safety Report 11319507 (Version 1)
Quarter: 2015Q3

REPORT INFORMATION
  Report Type: Spontaneous
  Country: FR (occurrence: FR)
  Receive Date: 20150729
  Receipt Date: 20150729
  Transmission Date: 20151125
  Serious: Yes (Other)
  Sender: FDA-Public Use
  Company Number: PHHY2015FR089459

PATIENT
  Sex: Female

DRUGS (4)
  1. KARDEGIC [Suspect]
     Active Substance: ASPIRIN LYSINE
     Indication: HEART TRANSPLANT
     Dosage: 75 MG, QD (LONG TERM TREATMENT)
     Route: 048
  2. IMUREL [Suspect]
     Active Substance: AZATHIOPRINE SODIUM
     Indication: HEART TRANSPLANT
     Dosage: 50 MG, QD (LONG TERM TREATMENT)
     Route: 048
  3. VASTEN [Suspect]
     Active Substance: PRAVASTATIN SODIUM
     Indication: HEART TRANSPLANT
     Dosage: 20 MG, QD (LONG TERM TREATMENT)
     Route: 048
  4. NEORAL [Suspect]
     Active Substance: CYCLOSPORINE
     Indication: HEART TRANSPLANT
     Dosage: 40 MG, QD (LONG TERM TREATMENT)
     Route: 048

REACTIONS (1)
  - Foetal death [Recovered/Resolved with Sequelae]

NARRATIVE: CASE EVENT DATE: 201506
